FAERS Safety Report 16367556 (Version 11)
Quarter: 2021Q4

REPORT INFORMATION
  Report Type: Spontaneous
  Country: US (occurrence: US)
  Receive Date: 20190529
  Receipt Date: 20211028
  Transmission Date: 20220303
  Serious: Yes (Hospitalization)
  Sender: FDA-Public Use
  Company Number: US-PFIZER INC-2016531652

PATIENT
  Age: 67 Year
  Sex: Female
  Weight: 74.39 kg

DRUGS (33)
  1. LYRICA [Suspect]
     Active Substance: PREGABALIN
     Indication: Fibromyalgia
     Dosage: 75 MG, UNK (75 MG 3 OR 4 A DAY)
     Route: 048
     Dates: start: 20050520, end: 20050520
  2. LYRICA [Suspect]
     Active Substance: PREGABALIN
     Indication: Cystic fibrosis
     Dosage: 75 MG, 4X/DAY (TAKE 1 CAPSULE 4 TIMES A DAY )
     Route: 048
     Dates: start: 20200220
  3. LYRICA [Suspect]
     Active Substance: PREGABALIN
     Indication: Neuralgia
     Dosage: 3 DF, DAILY (^THE DOCTOR HAD ME ON THREE A DAY AND WANTED ME TO START FOUR A DAY^)
  4. LYRICA [Suspect]
     Active Substance: PREGABALIN
     Indication: Tremor
  5. LYRICA [Suspect]
     Active Substance: PREGABALIN
     Indication: Pain
  6. ACYCLOVIR [Concomitant]
     Active Substance: ACYCLOVIR
     Indication: Herpes zoster
     Dosage: 800 MG, 3X/DAY
     Dates: start: 20151124
  7. AMOXICILLIN [Concomitant]
     Active Substance: AMOXICILLIN
     Indication: Lyme disease
     Dosage: 500 MG, 4X/DAY
     Dates: start: 20160614
  8. ARMOUR THYROID [Concomitant]
     Active Substance: THYROID, PORCINE
     Indication: Thyroid disorder
     Dosage: UNK (1- 15 MG MORN; 1- 1/2 OTHER MORN)
  9. ARMOUR THYROID [Concomitant]
     Active Substance: THYROID, PORCINE
     Dosage: UNK (1- 30 MG MORN)
  10. CELEBREX [Concomitant]
     Active Substance: CELECOXIB
     Indication: Arthralgia
     Dosage: 200 MG, 2X/DAY
  11. CELEBREX [Concomitant]
     Active Substance: CELECOXIB
     Indication: Arthritis
  12. DICYCLOMINE [Concomitant]
     Active Substance: DICYCLOMINE HYDROCHLORIDE
     Indication: Irritable bowel syndrome
     Dosage: 20 MG, 2X/DAY
     Dates: start: 20140918
  13. DICYCLOMINE [Concomitant]
     Active Substance: DICYCLOMINE HYDROCHLORIDE
     Indication: Muscle spasms
  14. FLEXERIL [Concomitant]
     Active Substance: CYCLOBENZAPRINE HYDROCHLORIDE
     Indication: Muscle relaxant therapy
     Dosage: 10 MG, 1X/DAY
  15. FLUOROMETHOLONE [Concomitant]
     Active Substance: FLUOROMETHOLONE
     Indication: Dry eye
     Dosage: UNK, DAILY (2-4 DROPS EACH EYE A DAY)
     Route: 047
     Dates: start: 20151215
  16. FLUOXETINE [Concomitant]
     Active Substance: FLUOXETINE HYDROCHLORIDE
     Indication: Depression
     Dosage: 40 MG, 1X/DAY
  17. FLUTICASONE PROPIONATE [Concomitant]
     Active Substance: FLUTICASONE PROPIONATE
     Indication: Hypersensitivity
     Dosage: UNK, 2X/DAY
     Route: 045
  18. LANSOPRAZOLE [Concomitant]
     Active Substance: LANSOPRAZOLE
     Indication: Ulcer
     Dosage: UNK
     Dates: start: 20150126
  19. LANSOPRAZOLE [Concomitant]
     Active Substance: LANSOPRAZOLE
     Indication: Abdominal discomfort
  20. LOPERAMIDE HYDROCHLORIDE [Concomitant]
     Active Substance: LOPERAMIDE HYDROCHLORIDE
     Indication: Diarrhoea
     Dosage: 2 MG, UNK
     Dates: start: 20140918
  21. NITROSTAT [Concomitant]
     Active Substance: NITROGLYCERIN
     Indication: Heart rate
     Dosage: 4 MG, AS NEEDED
     Dates: start: 2014
  22. NITROSTAT [Concomitant]
     Active Substance: NITROGLYCERIN
     Indication: Chest pain
  23. NORCO [Concomitant]
     Active Substance: ACETAMINOPHEN\HYDROCODONE BITARTRATE
     Indication: Pain
     Dosage: UNK [5-325MG 3 OR 4 A DAY]
     Dates: end: 201810
  24. RELPAX [Concomitant]
     Active Substance: ELETRIPTAN HYDROBROMIDE
     Indication: Migraine
     Dosage: 100 MG, AS NEEDED
  25. RELPAX [Concomitant]
     Active Substance: ELETRIPTAN HYDROBROMIDE
     Dosage: 40 MG, AS NEEDED (MAY REPEAT IN 2 HRS)
  26. ROBAXIN [Concomitant]
     Active Substance: METHOCARBAMOL
     Indication: Muscle tightness
     Dosage: 750 MG, 3X/DAY
  27. SINGULAIR [Concomitant]
     Active Substance: MONTELUKAST SODIUM
     Indication: Asthma
     Dosage: 100 MG, 1X/DAY (AT NIGHT)
  28. SYSTANE (HYPROMELLOSE 2910 (4000 MPA.S)) [Concomitant]
     Active Substance: HYPROMELLOSE 2910 (4000 MPA.S)
     Indication: Dry eye
     Dosage: UNK
     Route: 047
     Dates: start: 20151215
  29. TRAZODONE [Concomitant]
     Active Substance: TRAZODONE HYDROCHLORIDE
     Indication: Sleep disorder
     Dosage: 75 MG, 1X/DAY (AT NIGHT)
  30. TRAZODONE [Concomitant]
     Active Substance: TRAZODONE HYDROCHLORIDE
     Indication: Depression
  31. VALIUM [Concomitant]
     Active Substance: DIAZEPAM
     Indication: Anxiety
     Dosage: 5 MG, UNK (3-4 A DAY)
     Dates: start: 199007
  32. VALIUM [Concomitant]
     Active Substance: DIAZEPAM
     Indication: Muscle spasms
  33. ZETONNA [Concomitant]
     Active Substance: CICLESONIDE
     Indication: Cough
     Dosage: UNK, AS NEEDED
     Route: 055

REACTIONS (2)
  - Pain [Not Recovered/Not Resolved]
  - Withdrawal syndrome [Unknown]

NARRATIVE: CASE EVENT DATE: 20190802
